FAERS Safety Report 5061709-2 (Version None)
Quarter: 2006Q3

REPORT INFORMATION
  Report Type: 
  Country: None (occurrence: None)
  Receive Date: 20060720
  Receipt Date: 20060711
  Transmission Date: 20061208
  Serious: Yes (Disabling)
  Sender: FDA-Public Use
  Company Number: GBWYE738513JUN05

PATIENT
  Age: 30 Year
  Sex: Male

DRUGS (5)
  1. EFFEXOR [Suspect]
     Indication: DEPRESSION
     Dosage: SEE IMAGE
     Route: 048
     Dates: start: 20020521, end: 20040902
  2. EFFEXOR [Suspect]
     Indication: DEPRESSION
     Dosage: SEE IMAGE
     Route: 048
     Dates: start: 20050104, end: 20050609
  3. EFFEXOR [Suspect]
     Indication: DEPRESSION
     Dosage: SEE IMAGE
     Route: 048
     Dates: start: 20050610, end: 20050630
  4. EFFEXOR [Suspect]
     Indication: DEPRESSION
     Dosage: 37.5 MG 1X PER 2 DAY ORAL
     Route: 048
     Dates: start: 20050701, end: 20050905
  5. BETAHISTINE (BETAHISTINE) [Concomitant]

REACTIONS (18)
  - BALANCE DISORDER [None]
  - CEREBELLAR ATAXIA [None]
  - CONDITION AGGRAVATED [None]
  - CONTUSION [None]
  - COORDINATION ABNORMAL [None]
  - DEAFNESS NEUROSENSORY [None]
  - DRUG WITHDRAWAL SYNDROME [None]
  - DYSARTHRIA [None]
  - EAR DISCOMFORT [None]
  - FALL [None]
  - GAIT DISTURBANCE [None]
  - HEADACHE [None]
  - HYPOACUSIS [None]
  - MUSCULOSKELETAL CHEST PAIN [None]
  - NIGHT SWEATS [None]
  - PARAESTHESIA [None]
  - SINUS DISORDER [None]
  - TINNITUS [None]
